FAERS Safety Report 14923743 (Version 1)
Quarter: 2018Q2

REPORT INFORMATION
  Report Type: Report from Study
  Country: US (occurrence: US)
  Receive Date: 20180522
  Receipt Date: 20180522
  Transmission Date: 20180711
  Serious: Yes (Death, Life-Threatening, Other)
  Sender: FDA-Public Use
  Company Number: US-ACCORD-067264

PATIENT
  Age: 38 Year
  Sex: Male
  Weight: 88 kg

DRUGS (3)
  1. METHADONE [Suspect]
     Active Substance: METHADONE HYDROCHLORIDE
  2. TRAZODONE [Suspect]
     Active Substance: TRAZODONE HYDROCHLORIDE
  3. AMITRIPTYLINE [Suspect]
     Active Substance: AMITRIPTYLINE

REACTIONS (2)
  - Toxicity to various agents [Fatal]
  - Accidental overdose [Fatal]
